FAERS Safety Report 8060427-6 (Version None)
Quarter: 2012Q1

REPORT INFORMATION
  Report Type: 
  Country: None (occurrence: None)
  Receive Date: 20120120
  Receipt Date: 20110324
  Transmission Date: 20120608
  Serious: Yes (Hospitalization)
  Sender: FDA-Public Use
  Company Number: FR-GLAXOSMITHKLINE-B0708151A

PATIENT
  Sex: Male

DRUGS (8)
  1. CHLORPROMAZINE HCL [Concomitant]
     Route: 065
  2. ARIXTRA [Suspect]
     Indication: THROMBOSIS PROPHYLAXIS
     Dosage: 2.5MG PER DAY
     Route: 058
     Dates: start: 20110106, end: 20110202
  3. ESCITALOPRAM OXALATE [Suspect]
     Dosage: 10MG PER DAY
     Route: 048
     Dates: start: 20110106, end: 20110204
  4. NEXIUM [Concomitant]
     Route: 065
  5. SOLU-MEDROL [Concomitant]
     Route: 065
  6. KETOPROFEN [Suspect]
     Route: 048
     Dates: start: 20110106, end: 20110204
  7. SUFENTANYL [Concomitant]
     Route: 065
  8. MIDAZOLAM HCL [Concomitant]
     Route: 065

REACTIONS (2)
  - THROMBOCYTOPENIA [None]
  - HAEMATURIA [None]
